FAERS Safety Report 7477889-5 (Version None)
Quarter: 2011Q2

REPORT INFORMATION
  Report Type: 
  Country: None (occurrence: None)
  Receive Date: 20110511
  Receipt Date: 20110511
  Transmission Date: 20111010
  Serious: Yes (Other)
  Sender: FDA-Public Use
  Company Number: None

PATIENT
  Age: 56 Year
  Sex: Male
  Weight: 104.2 kg

DRUGS (7)
  1. CETUXIMAB [Concomitant]
  2. ATIVAN [Concomitant]
  3. DIPHENHYDRAMINE HCL [Concomitant]
  4. DEXAMETHASONE [Concomitant]
  5. ABRAXANE [Suspect]
     Indication: SQUAMOUS CELL CARCINOMA
     Dosage: 20 MG/M2, WEEKLY, IV
     Route: 042
     Dates: start: 20110405
  6. CISPLATIN [Suspect]
     Indication: SQUAMOUS CELL CARCINOMA
     Dosage: 20 MG/M2, WEEKLY, IV
     Route: 042
     Dates: start: 20110405
  7. FAMOTIDINE [Concomitant]

REACTIONS (1)
  - LYMPHOCYTE COUNT DECREASED [None]
